FAERS Safety Report 4943652-X (Version None)
Quarter: 2006Q1

REPORT INFORMATION
  Report Type: 
  Country: None (occurrence: None)
  Receive Date: 20060310
  Receipt Date: 20060220
  Transmission Date: 20060701
  Serious: Yes (Other)
  Sender: FDA-Public Use
  Company Number: ES200602003789

PATIENT
  Age: 26 Year
  Sex: Female

DRUGS (2)
  1. FLUOXETINE [Suspect]
     Indication: DYSTHYMIC DISORDER
     Dosage: 20 MG, DAILY (1/D) ORAL
     Route: 048
  2. GALENICETHINYLESTRADIOL/GESTODENE/(ETHINYLESTADIOL, GESTODENE) CAPSULE [Concomitant]

REACTIONS (4)
  - BLOOD THYROID STIMULATING HORMONE INCREASED [None]
  - DRUG INTERACTION [None]
  - DYSKINESIA [None]
  - MYOCLONUS [None]
